FAERS Safety Report 8946802 (Version 1)
Quarter: 2012Q4

REPORT INFORMATION
  Report Type: 
  Country: US (occurrence: US)
  Receive Date: 20121205
  Receipt Date: 20121205
  Transmission Date: 20130627
  Serious: Yes (Hospitalization)
  Sender: FDA-Public Use
  Company Number: US-GLAXOSMITHKLINE-A0872426A

PATIENT
  Age: 47 Year
  Sex: Male

DRUGS (1)
  1. AVANDIA [Suspect]
     Indication: DIABETES MELLITUS
     Dosage: 4MG Twice per day
     Route: 048
     Dates: start: 2002, end: 2008

REACTIONS (9)
  - Myocardial infarction [Not Recovered/Not Resolved]
  - Renal failure [Unknown]
  - Hepatic failure [Unknown]
  - Pancreatic insufficiency [Unknown]
  - Depression [Unknown]
  - Anxiety [Unknown]
  - Gastrointestinal disorder [Unknown]
  - Haemorrhage [Unknown]
  - Convulsion [Unknown]
